FAERS Safety Report 16562603 (Version 1)
Quarter: 2019Q3

REPORT INFORMATION
  Report Type: Spontaneous
  Country: US (occurrence: US)
  Receive Date: 20190711
  Receipt Date: 20190711
  Transmission Date: 20191004
  Serious: No
  Sender: FDA-Public Use
  Company Number: US-TEVA-2019-US-1076972

PATIENT

DRUGS (1)
  1. CLOTRIMAZOLE. [Suspect]
     Active Substance: CLOTRIMAZOLE
     Indication: ANTIFUNGAL TREATMENT
     Route: 061

REACTIONS (1)
  - Drug ineffective [Unknown]
